FAERS Safety Report 9997791 (Version 1)
Quarter: 2014Q1

REPORT INFORMATION
  Report Type: Spontaneous
  Country: US (occurrence: US)
  Receive Date: 20140311
  Receipt Date: 20140311
  Transmission Date: 20141002
  Serious: No
  Sender: FDA-Public Use
  Company Number: US-PFIZER INC-2014067344

PATIENT
  Age: 53 Year
  Sex: Male
  Weight: 114.29 kg

DRUGS (1)
  1. SUTENT [Suspect]
     Indication: RENAL CANCER
     Dosage: 50 MG, 1X/DAY
     Route: 048
     Dates: start: 20140221

REACTIONS (4)
  - Dizziness [Unknown]
  - Headache [Unknown]
  - Rash [Unknown]
  - Nausea [Unknown]
